FAERS Safety Report 24334408 (Version 1)
Quarter: 2024Q3

REPORT INFORMATION
  Report Type: Report from Study
  Country: MX (occurrence: MX)
  Receive Date: 20240918
  Receipt Date: 20240918
  Transmission Date: 20241017
  Serious: Yes (Hospitalization)
  Sender: AMGEN
  Company Number: MX-AMGEN-MEXSL2024182832

PATIENT
  Age: 86 Year
  Sex: Female
  Weight: 48 kg

DRUGS (1)
  1. EVENITY [Suspect]
     Active Substance: ROMOSOZUMAB-AQQG
     Indication: Osteoporosis
     Dosage: 105?MG/1.17?ML (1 INJECTION), QMO
     Route: 058
     Dates: start: 202407, end: 202408

REACTIONS (2)
  - Fluid retention [Recovering/Resolving]
  - Off label use [Unknown]

NARRATIVE: CASE EVENT DATE: 20240101
